FAERS Safety Report 5560185-0 (Version None)
Quarter: 2007Q4

REPORT INFORMATION
  Report Type: 
  Country: None (occurrence: None)
  Receive Date: 20071214
  Receipt Date: 20071031
  Transmission Date: 20080405
  Serious: No
  Sender: FDA-Public Use
  Company Number: US-ABBOTT-07P-163-0423147-00

PATIENT
  Sex: Female
  Weight: 123 kg

DRUGS (3)
  1. HUMIRA [Suspect]
     Indication: PSORIATIC ARTHROPATHY
     Route: 058
     Dates: start: 20060501, end: 20070601
  2. HUMIRA [Suspect]
     Indication: PSORIASIS
  3. HUMIRA [Suspect]
     Indication: RHEUMATOID ARTHRITIS

REACTIONS (7)
  - ARTHRALGIA [None]
  - INJECTION SITE BRUISING [None]
  - INJECTION SITE REACTION [None]
  - PSORIASIS [None]
  - PSORIATIC ARTHROPATHY [None]
  - RASH [None]
  - RHEUMATOID ARTHRITIS [None]
